FAERS Safety Report 5276381-6 (Version None)
Quarter: 2007Q1

REPORT INFORMATION
  Report Type: 
  Country: None (occurrence: None)
  Receive Date: 20070326
  Receipt Date: 20070312
  Transmission Date: 20070707
  Serious: Yes (Other)
  Sender: FDA-Public Use
  Company Number: US-SANOFI-SYNTHELABO-A03200702233

PATIENT
  Sex: Male

DRUGS (2)
  1. CYMBALTA [Concomitant]
     Dosage: UNK
  2. AMBIEN [Suspect]
     Indication: INSOMNIA
     Route: 048
     Dates: start: 20040801, end: 20051001

REACTIONS (5)
  - ABNORMAL BEHAVIOUR [None]
  - AMNESIA [None]
  - EATING DISORDER [None]
  - ROAD TRAFFIC ACCIDENT [None]
  - SOMNOLENCE [None]
